FAERS Safety Report 17021426 (Version 2)
Quarter: 2020Q1

REPORT INFORMATION
  Report Type: Spontaneous
  Country: GB (occurrence: GB)
  Receive Date: 20191112
  Receipt Date: 20200106
  Transmission Date: 20200409
  Serious: Yes (Death, Hospitalization, Other)
  Sender: FDA-Public Use
  Company Number: GB-ASTRAZENECA-2019SF61155

PATIENT
  Age: 60 Year
  Sex: Female

DRUGS (4)
  1. FOSTAIR [Concomitant]
     Active Substance: BECLOMETHASONE\FORMOTEROL
     Indication: ASTHMA
     Dosage: TT TWICE A DAY
     Route: 055
  2. OLMESARTAN [Concomitant]
     Active Substance: OLMESARTAN
     Indication: HYPERTENSION
  3. OMEPRAZOLE. [Concomitant]
     Active Substance: OMEPRAZOLE
     Indication: GASTROOESOPHAGEAL REFLUX DISEASE
     Route: 048
  4. IMFINZI [Suspect]
     Active Substance: DURVALUMAB
     Indication: LUNG CARCINOMA CELL TYPE UNSPECIFIED STAGE III
     Dosage: 650.0MG UNKNOWN
     Route: 042
     Dates: start: 20190710, end: 20190724

REACTIONS (8)
  - Fungal infection [Unknown]
  - General physical health deterioration [Unknown]
  - Pneumonia klebsiella [Fatal]
  - Aspergillus infection [Fatal]
  - Pneumonia [Unknown]
  - Respiratory failure [Unknown]
  - Radiation pneumonitis [Fatal]
  - Sepsis [Unknown]
